FAERS Safety Report 6676168-3 (Version None)
Quarter: 2010Q2

REPORT INFORMATION
  Report Type: 
  Country: None (occurrence: None)
  Receive Date: 20100412
  Receipt Date: 20100407
  Transmission Date: 20101027
  Serious: Yes (Hospitalization, Other)
  Sender: FDA-Public Use
  Company Number: US-ASTRAZENECA-2009UW20493

PATIENT
  Age: 37 Year
  Sex: Female
  Weight: 70.3 kg

DRUGS (5)
  1. SEROQUEL [Suspect]
     Indication: SLEEP DISORDER
     Dosage: 100-250 AT BED TIME
     Route: 048
     Dates: start: 20020103, end: 20040501
  2. SEROQUEL [Suspect]
     Indication: BIPOLAR DISORDER
     Dosage: 100-250 AT BED TIME
     Route: 048
     Dates: start: 20020103, end: 20040501
  3. SEROQUEL [Suspect]
     Indication: DEPRESSION
     Dosage: 100-250 AT BED TIME
     Route: 048
     Dates: start: 20020103, end: 20040501
  4. ABILIFY [Concomitant]
     Dates: start: 20080101
  5. GEODON [Concomitant]
     Dates: start: 20080101

REACTIONS (9)
  - BLOOD CHOLESTEROL INCREASED [None]
  - DIABETIC GASTROPARESIS [None]
  - FURUNCLE [None]
  - HYPERLIPIDAEMIA [None]
  - MALAISE [None]
  - OBESITY [None]
  - SYNCOPE [None]
  - TYPE 2 DIABETES MELLITUS [None]
  - WEIGHT INCREASED [None]
